FAERS Safety Report 8302602 (Version 2)
Quarter: 2013Q3

REPORT INFORMATION
  Report Type: Spontaneous
  Country: US (occurrence: US)
  Receive Date: 20111220
  Receipt Date: 20130925
  Transmission Date: 20140515
  Serious: Yes (Other)
  Sender: FDA-Public Use
  Company Number: US-ROCHE-794392

PATIENT
  Age: 15 Year
  Sex: Male
  Weight: 77.18 kg

DRUGS (5)
  1. ACCUTANE [Suspect]
     Indication: ACNE
     Route: 048
     Dates: start: 19970101, end: 19970630
  2. ACCUTANE [Suspect]
     Route: 048
     Dates: start: 200006, end: 200010
  3. ACCUTANE [Suspect]
     Route: 048
     Dates: start: 20000923, end: 20010530
  4. ALBUTEROL INHALER [Concomitant]
     Indication: ASTHMA
  5. ALLERGY SHOTS [Concomitant]

REACTIONS (3)
  - Colitis ulcerative [Recovering/Resolving]
  - Inflammatory bowel disease [Unknown]
  - Anxiety [Unknown]
